FAERS Safety Report 5207991-X (Version None)
Quarter: 2007Q1

REPORT INFORMATION
  Report Type: 
  Country: None (occurrence: None)
  Receive Date: 20070110
  Receipt Date: 20061228
  Transmission Date: 20070707
  Serious: Yes (Life-Threatening, Hospitalization)
  Sender: FDA-Public Use
  Company Number: RENA-12054

PATIENT
  Age: 55 Year
  Sex: Female

DRUGS (15)
  1. RENAGEL [Suspect]
     Indication: HYPERPHOSPHATAEMIA
     Dosage: 1 G TID PO
     Route: 048
     Dates: start: 20060612, end: 20061203
  2. RENAGEL [Suspect]
     Indication: HYPERPHOSPHATAEMIA
     Dosage: 0.75 G TID PO
     Route: 048
     Dates: start: 20060516, end: 20060611
  3. RENAGEL [Suspect]
     Indication: HYPERPHOSPHATAEMIA
     Dosage: 0.5 G TID PO
     Route: 048
     Dates: start: 20050729, end: 20050801
  4. RENAGEL [Suspect]
     Indication: HYPERPHOSPHATAEMIA
     Dosage: 1 G TID PO
     Route: 048
     Dates: start: 20041021, end: 20041201
  5. MINIPRESS [Concomitant]
  6. ULGUT [Concomitant]
  7. ALTAT [Concomitant]
  8. AMLODIPINE BESYLATE [Concomitant]
  9. TANKARD [Concomitant]
  10. KALIMATE [Concomitant]
  11. SALOBEL [Concomitant]
  12. RISUMIC [Concomitant]
  13. HERCEPTIN [Concomitant]
  14. TAXOL [Concomitant]
  15. NAVELBINE [Concomitant]

REACTIONS (9)
  - BREAST CANCER RECURRENT [None]
  - CONSTIPATION [None]
  - DRUG INEFFECTIVE [None]
  - FAECALOMA [None]
  - FAECES HARD [None]
  - HAEMODIALYSIS [None]
  - IATROGENIC INJURY [None]
  - LARGE INTESTINE PERFORATION [None]
  - PERITONEAL LESION [None]
